FAERS Safety Report 7915352-5 (Version None)
Quarter: 2011Q4

REPORT INFORMATION
  Report Type: 
  Country: None (occurrence: None)
  Receive Date: 20111115
  Receipt Date: 20111108
  Transmission Date: 20120403
  Serious: Yes (Death, Other)
  Sender: FDA-Public Use
  Company Number: PHHY2011PL90287

PATIENT
  Sex: Female

DRUGS (5)
  1. LETROZOLE [Suspect]
     Dosage: 2.5 MG, UNK
     Dates: start: 20080316, end: 20080615
  2. NAVELBINE [Concomitant]
  3. RADIOTHERAPY [Concomitant]
  4. FLUOROURACIL [Concomitant]
  5. BISPHOSPHONATES [Concomitant]

REACTIONS (2)
  - NEOPLASM PROGRESSION [None]
  - NEOPLASM MALIGNANT [None]
